FAERS Safety Report 15186189 (Version 2)
Quarter: 2019Q1

REPORT INFORMATION
  Report Type: Report from Study
  Country: US (occurrence: US)
  Receive Date: 20180723
  Receipt Date: 20190130
  Transmission Date: 20190417
  Serious: No
  Sender: FDA-Public Use
  Company Number: US-EXELIXIS-CABO-18014040

PATIENT
  Sex: Female

DRUGS (4)
  1. COMETRIQ [Suspect]
     Active Substance: CABOZANTINIB S-MALATE
     Indication: METASTASES TO LUNG
     Dosage: 40 MG, QD
  2. COMETRIQ [Suspect]
     Active Substance: CABOZANTINIB S-MALATE
     Indication: RENAL CANCER
     Dosage: 60 MG, QD
     Route: 048
     Dates: start: 20170215
  3. BENICAR [Concomitant]
     Active Substance: OLMESARTAN MEDOXOMIL
     Dosage: UNK
  4. COMETRIQ [Suspect]
     Active Substance: CABOZANTINIB S-MALATE
     Dosage: 20 MG, QD
     Route: 048

REACTIONS (5)
  - Abdominal discomfort [Unknown]
  - Off label use [Unknown]
  - Adrenal neoplasm [Unknown]
  - Palmar-plantar erythrodysaesthesia syndrome [Recovering/Resolving]
  - Diarrhoea [Recovering/Resolving]
